FAERS Safety Report 8010653-7 (Version None)
Quarter: 2011Q4

REPORT INFORMATION
  Report Type: 
  Country: None (occurrence: None)
  Receive Date: 20111228
  Receipt Date: 20111220
  Transmission Date: 20120403
  Serious: Yes (Hospitalization, Other)
  Sender: FDA-Public Use
  Company Number: PHHY2011SE097809

PATIENT
  Sex: Female

DRUGS (4)
  1. TASIGNA [Suspect]
     Indication: CHRONIC MYELOID LEUKAEMIA
     Dosage: 800 MG, DAILY
     Route: 048
     Dates: start: 20090601, end: 20111101
  2. HYDROXOCOBALAMIN [Concomitant]
  3. ASPIRIN [Concomitant]
     Dosage: 75 MG, UNK
  4. NITROMEX [Concomitant]

REACTIONS (4)
  - PERIPHERAL ISCHAEMIA [None]
  - VASCULAR OCCLUSION [None]
  - PAIN IN EXTREMITY [None]
  - ARTERIOSCLEROSIS [None]
